FAERS Safety Report 6192950-3 (Version None)
Quarter: 2009Q2

REPORT INFORMATION
  Report Type: 
  Country: None (occurrence: None)
  Receive Date: 20090518
  Receipt Date: 20090507
  Transmission Date: 20091009
  Serious: Yes (Hospitalization)
  Sender: FDA-Public Use
  Company Number: US-BIOGENIDEC-2008BI026825

PATIENT
  Age: 62 Year
  Sex: Female
  Weight: 58 kg

DRUGS (2)
  1. AVONEX [Suspect]
     Indication: MULTIPLE SCLEROSIS
     Route: 030
     Dates: start: 20030901
  2. AVONEX [Suspect]
     Route: 030
     Dates: start: 19960101, end: 20030801

REACTIONS (5)
  - ANAEMIA [None]
  - ARTHRALGIA [None]
  - BLOOD SODIUM DECREASED [None]
  - NERVE COMPRESSION [None]
  - OEDEMA PERIPHERAL [None]
